FAERS Safety Report 10073221 (Version 2)
Quarter: 2014Q2

REPORT INFORMATION
  Report Type: Spontaneous
  Country: US (occurrence: US)
  Receive Date: 20140411
  Receipt Date: 20140624
  Transmission Date: 20141212
  Serious: Yes (Other)
  Sender: FDA-Public Use
  Company Number: US-GLAXOSMITHKLINE-A1068079A

PATIENT
  Age: 61 Year
  Sex: Male

DRUGS (10)
  1. VOTRIENT [Suspect]
     Indication: RENAL CANCER
     Dosage: 4TAB PER DAY
     Route: 048
     Dates: start: 20131211, end: 20140605
  2. GABAPENTIN [Concomitant]
  3. SENNA [Concomitant]
  4. ZOFRAN [Concomitant]
  5. AMBIEN [Concomitant]
  6. AMLODIPINE [Concomitant]
  7. MORPHINE [Concomitant]
  8. OXYCODONE [Concomitant]
  9. SYNTHROID [Concomitant]
  10. TYLENOL [Concomitant]

REACTIONS (2)
  - Thrombosis [Recovered/Resolved]
  - Vitreous floaters [Recovered/Resolved]
